FAERS Safety Report 8388653-7 (Version None)
Quarter: 2012Q2

REPORT INFORMATION
  Report Type: 
  Country: None (occurrence: None)
  Receive Date: 20120525
  Receipt Date: 20120519
  Transmission Date: 20120825
  Serious: Yes (Other)
  Sender: FDA-Public Use
  Company Number: CO-MERCK-1205USA04570

PATIENT
  Age: 71 Year
  Sex: Male

DRUGS (2)
  1. VYTORIN [Suspect]
     Route: 048
     Dates: start: 20040101
  2. HYZAAR [Suspect]
     Route: 048
     Dates: start: 20040101

REACTIONS (1)
  - RECTAL ULCER [None]
